FAERS Safety Report 4286037-4 (Version None)
Quarter: 2004Q1

REPORT INFORMATION
  Report Type: 
  Country: None (occurrence: None)
  Receive Date: 20040205
  Receipt Date: 20031119
  Transmission Date: 20041129
  Serious: Yes (Hospitalization)
  Sender: FDA-Public Use
  Company Number: PHEH2003US10644

PATIENT
  Age: 49 Year
  Sex: Female

DRUGS (3)
  1. ZELNORM [Suspect]
     Dosage: 6 MG, BID
     Route: 048
     Dates: start: 20030901, end: 20031001
  2. ZOLOFT [Concomitant]
  3. WELLBUTRIN SR [Concomitant]

REACTIONS (3)
  - ABDOMINAL PAIN [None]
  - PELVIC PERITONEAL ADHESIONS [None]
  - POSTOPERATIVE ADHESION [None]
